FAERS Safety Report 12642516 (Version 2)
Quarter: 2016Q3

REPORT INFORMATION
  Report Type: Report from Study
  Country: PA (occurrence: PA)
  Receive Date: 20160810
  Receipt Date: 20160826
  Transmission Date: 20161109
  Serious: Yes (Hospitalization)
  Sender: FDA-Public Use
  Company Number: PHHY2016PA109848

PATIENT
  Sex: Female
  Weight: 120 kg

DRUGS (1)
  1. SANDOSTATIN LAR DEPOT [Suspect]
     Active Substance: OCTREOTIDE ACETATE
     Indication: CARCINOID SYNDROME
     Dosage: 20 MG, QMO
     Route: 030

REACTIONS (8)
  - Hypersensitivity [Recovering/Resolving]
  - Headache [Recovering/Resolving]
  - Hepatic cancer [Unknown]
  - Carcinoid crisis [Recovering/Resolving]
  - Rash [Recovering/Resolving]
  - Diarrhoea [Recovering/Resolving]
  - Vomiting [Recovering/Resolving]
  - Blood glucose fluctuation [Recovering/Resolving]
